FAERS Safety Report 10939192 (Version 2)
Quarter: 2015Q2

REPORT INFORMATION
  Report Type: Spontaneous
  Country: US (occurrence: US)
  Receive Date: 20150322
  Receipt Date: 20150525
  Transmission Date: 20150821
  Serious: No
  Sender: FDA-Public Use
  Company Number: US-JNJFOC-20140701793

PATIENT
  Age: 30 Year
  Sex: Female
  Weight: 79.83 kg

DRUGS (2)
  1. SOMA [Concomitant]
     Active Substance: CARISOPRODOL
     Indication: PRODUCT USED FOR UNKNOWN INDICATION
     Dosage: 350 MG AS NEEDED
     Route: 048
  2. NUCYNTA ER [Suspect]
     Active Substance: TAPENTADOL HYDROCHLORIDE
     Indication: SPINAL PAIN
     Dosage: 100 MG ONCE EVERY 4 HOURS
     Route: 048
     Dates: start: 20140627

REACTIONS (2)
  - Drug dose omission [Unknown]
  - Adverse event [Unknown]

NARRATIVE: CASE EVENT DATE: 20140701
